FAERS Safety Report 10613922 (Version 2)
Quarter: 2015Q1

REPORT INFORMATION
  Report Type: Spontaneous
  Country: US (occurrence: US)
  Receive Date: 20141128
  Receipt Date: 20150127
  Transmission Date: 20150720
  Serious: No
  Sender: FDA-Public Use
  Company Number: US-GLAXOSMITHKLINE-A1073078A

PATIENT

DRUGS (4)
  1. ZYBAN [Suspect]
     Active Substance: BUPROPION HYDROCHLORIDE
     Route: 048
  2. ALLERGY MEDICATION [Concomitant]
     Active Substance: DIPHENHYDRAMINE HYDROCHLORIDE
  3. BUPROPION TABLET [Suspect]
     Active Substance: BUPROPION
     Indication: EX-TOBACCO USER
     Route: 048
  4. HORMONE REPLACEMENT [Concomitant]

REACTIONS (5)
  - Somnolence [Recovered/Resolved]
  - Nightmare [Recovered/Resolved]
  - Nervousness [Recovered/Resolved]
  - Dry mouth [Recovered/Resolved]
  - Hallucination [Recovered/Resolved]
